FAERS Safety Report 5697838-X (Version None)
Quarter: 2008Q2

REPORT INFORMATION
  Report Type: 
  Country: None (occurrence: None)
  Receive Date: 20080408
  Receipt Date: 20080403
  Transmission Date: 20081010
  Serious: Yes (Other)
  Sender: FDA-Public Use
  Company Number: AU-ALLERGAN-0803358US

PATIENT
  Sex: Male

DRUGS (5)
  1. COMBIGAN [Suspect]
     Indication: GLAUCOMA
     Dosage: 1 GTT, QPM
     Route: 047
  2. LIPITOR [Concomitant]
     Indication: DRUG USE FOR UNKNOWN INDICATION
  3. MONOPLUS [Concomitant]
     Indication: DRUG USE FOR UNKNOWN INDICATION
  4. XALATAN [Concomitant]
     Indication: GLAUCOMA
     Dosage: UNK, BID
     Route: 047
  5. ASPIRIN [Concomitant]

REACTIONS (1)
  - HYPOTENSION [None]
